FAERS Safety Report 6266268-4 (Version None)
Quarter: 2009Q3

REPORT INFORMATION
  Report Type: 
  Country: None (occurrence: None)
  Receive Date: 20090709
  Receipt Date: 20090702
  Transmission Date: 20100115
  Serious: Yes (Hospitalization)
  Sender: FDA-Public Use
  Company Number: JPI-P-007817

PATIENT
  Age: 39 Year
  Sex: Female

DRUGS (3)
  1. XYREM [Suspect]
     Indication: NARCOLEPSY
     Dosage: 5 GM (2.5 GM, 2 IN 1 D), ORAL; 9 GM (4.5 GM, 2 IN 1 D), ORAL; 18 GM (4.5 GM, 4 IN 1 D), ORAL
     Route: 048
     Dates: start: 20090623, end: 20090623
  2. XYREM [Suspect]
     Indication: NARCOLEPSY
     Dosage: 5 GM (2.5 GM, 2 IN 1 D), ORAL; 9 GM (4.5 GM, 2 IN 1 D), ORAL; 18 GM (4.5 GM, 4 IN 1 D), ORAL
     Route: 048
     Dates: start: 20060913
  3. XYREM [Suspect]
     Indication: NARCOLEPSY
     Dosage: 5 GM (2.5 GM, 2 IN 1 D), ORAL; 9 GM (4.5 GM, 2 IN 1 D), ORAL; 18 GM (4.5 GM, 4 IN 1 D), ORAL
     Route: 048
     Dates: start: 20090318

REACTIONS (3)
  - BLOOD POTASSIUM DECREASED [None]
  - DEHYDRATION [None]
  - INCORRECT DOSE ADMINISTERED [None]
